FAERS Safety Report 8824293 (Version 2)
Quarter: 2012Q4

REPORT INFORMATION
  Report Type: 
  Country: DE (occurrence: DE)
  Receive Date: 20121004
  Receipt Date: 20121031
  Transmission Date: 20130627
  Serious: Yes (Other)
  Sender: FDA-Public Use
  Company Number: DE-US-EMD SERONO, INC.-7164429

PATIENT
  Age: 35 Year
  Sex: Female
  Weight: 53 kg

DRUGS (6)
  1. REBIF [Suspect]
     Indication: MULTIPLE SCLEROSIS
     Route: 058
     Dates: start: 20120827, end: 20120924
  2. REBIF [Suspect]
     Route: 058
     Dates: start: 20121019
  3. IBUPROFEN [Concomitant]
     Indication: PAIN
     Route: 048
     Dates: start: 201204
  4. MG [Concomitant]
     Indication: MUSCLE SPASMS
     Route: 048
     Dates: start: 20120911
  5. DEKRISTOL [Concomitant]
     Indication: VITAMIN D DEFICIENCY
     Route: 048
     Dates: start: 201204
  6. AGNUS CASTUS [Concomitant]
     Indication: MENSTRUAL DISORDER
     Route: 048
     Dates: start: 20120911

REACTIONS (4)
  - Vaginal haemorrhage [Recovered/Resolved]
  - Mucosal inflammation [Not Recovered/Not Resolved]
  - Mental disorder [Not Recovered/Not Resolved]
  - Nasopharyngitis [Not Recovered/Not Resolved]
